FAERS Safety Report 16445252 (Version 2)
Quarter: 2019Q2

REPORT INFORMATION
  Report Type: Spontaneous
  Country: TR (occurrence: TR)
  Receive Date: 20190618
  Receipt Date: 20190625
  Transmission Date: 20190711
  Serious: Yes (Other)
  Sender: FDA-Public Use
  Company Number: TR-GILEAD-2019-0413722

PATIENT
  Age: 66 Year
  Sex: Male

DRUGS (1)
  1. HARVONI [Suspect]
     Active Substance: LEDIPASVIR\SOFOSBUVIR
     Indication: CHRONIC HEPATITIS C
     Dosage: UNK
     Route: 065
     Dates: start: 201802, end: 201807

REACTIONS (5)
  - Drug ineffective [Unknown]
  - Oesophageal varices haemorrhage [Unknown]
  - Ascites [Unknown]
  - Anaemia [Not Recovered/Not Resolved]
  - Hepatitis C [Unknown]

NARRATIVE: CASE EVENT DATE: 2019
